FAERS Safety Report 5739598-X (Version None)
Quarter: 2008Q2

REPORT INFORMATION
  Report Type: 
  Country: None (occurrence: None)
  Receive Date: 20080513
  Receipt Date: 20080425
  Transmission Date: 20081010
  Serious: Yes (Death, Hospitalization)
  Sender: FDA-Public Use
  Company Number: CAP07000215

PATIENT
  Age: 77 Year
  Sex: Female
  Weight: 35.8 kg

DRUGS (3)
  1. MACROBID [Suspect]
     Indication: URINARY TRACT INFECTION
     Dosage: 1 CAPSUL, BEDTIME, ORAL
     Route: 048
     Dates: start: 20031219, end: 20050101
  2. ZESTRIL [Suspect]
  3. AZATHIOPRINE [Concomitant]

REACTIONS (14)
  - ACTIVITIES OF DAILY LIVING IMPAIRED [None]
  - COLLAGEN-VASCULAR DISEASE [None]
  - DYSPNOEA [None]
  - ECONOMIC PROBLEM [None]
  - FATIGUE [None]
  - IDIOPATHIC PULMONARY FIBROSIS [None]
  - INTERSTITIAL LUNG DISEASE [None]
  - ORAL INTAKE REDUCED [None]
  - PLEURAL FIBROSIS [None]
  - PNEUMOTHORAX [None]
  - QUALITY OF LIFE DECREASED [None]
  - RENAL FAILURE [None]
  - SHOCK [None]
  - WEIGHT DECREASED [None]
